FAERS Safety Report 4860939-X (Version None)
Quarter: 2005Q4

REPORT INFORMATION
  Report Type: 
  Country: None (occurrence: None)
  Receive Date: 20051220
  Receipt Date: 20051209
  Transmission Date: 20060501
  Serious: Yes (Other)
  Sender: FDA-Public Use
  Company Number: CA-BRISTOL-MYERS SQUIBB COMPANY-13220058

PATIENT
  Age: 84 Year
  Sex: Female

DRUGS (10)
  1. TEQUIN [Suspect]
     Route: 042
  2. ATROVENT [Concomitant]
  3. HEPARIN [Concomitant]
  4. L-THYROXINE [Concomitant]
  5. LASIX [Concomitant]
  6. LORAZEPAM [Concomitant]
  7. MORPHINE [Concomitant]
  8. PULMICORT [Concomitant]
  9. SPIRONOLACTONE [Concomitant]
  10. TYLENOL [Concomitant]

REACTIONS (1)
  - HYPOGLYCAEMIA [None]
